FAERS Safety Report 21699210 (Version 2)
Quarter: 2022Q4

REPORT INFORMATION
  Report Type: Spontaneous
  Country: AR (occurrence: AR)
  Receive Date: 20221208
  Receipt Date: 20221229
  Transmission Date: 20230113
  Serious: Yes (Other)
  Sender: FDA-Public Use
  Company Number: AR-UCBSA-2022068565

PATIENT
  Age: 24 Year
  Sex: Male

DRUGS (1)
  1. CETIRIZINE HYDROCHLORIDE [Suspect]
     Active Substance: CETIRIZINE HYDROCHLORIDE
     Indication: Rhinitis allergic
     Dosage: 10MG
     Route: 065

REACTIONS (3)
  - Coeliac disease [Not Recovered/Not Resolved]
  - Drug hypersensitivity [Unknown]
  - Reaction to excipient [Unknown]
